FAERS Safety Report 24621018 (Version 2)
Quarter: 2024Q4

REPORT INFORMATION
  Report Type: Spontaneous
  Country: US (occurrence: US)
  Receive Date: 20241114
  Receipt Date: 20241125
  Transmission Date: 20250115
  Serious: Yes (Hospitalization, Other)
  Sender: MERCK
  Company Number: US-009507513-2411USA004141

PATIENT
  Age: 22 Year
  Sex: Female
  Weight: 97.1 kg

DRUGS (5)
  1. KEYTRUDA [Suspect]
     Active Substance: PEMBROLIZUMAB
     Indication: Hodgkin^s disease
     Dosage: 200 MILLIGRAM, Q3W
     Route: 042
     Dates: start: 20240705, end: 20240912
  2. GEMCITABINE HYDROCHLORIDE [Suspect]
     Active Substance: GEMCITABINE HYDROCHLORIDE
     Indication: Hodgkin^s disease
     Dosage: 1000 MG, CYCLICAL, DAY 1 + 8 OF EACH 21-DAY CYCLE
     Route: 042
     Dates: start: 20240705, end: 20240912
  3. BRENTUXIMAB VEDOTIN [Suspect]
     Active Substance: BRENTUXIMAB VEDOTIN
     Indication: Hodgkin^s disease
     Dosage: 1.2 MILLIGRAM/KILOGRAM, QOW
     Route: 042
     Dates: start: 20240510, end: 20240622
  4. VINORELBINE [Suspect]
     Active Substance: VINORELBINE TARTRATE
     Indication: Hodgkin^s disease
     Dosage: 20 MG, CYCLICAL, DAY 1 + 8 OF EACH 21-DAY CYCLE
     Route: 042
     Dates: start: 20240705, end: 20240912
  5. DOXORUBICIN HYDROCHLORIDE [Suspect]
     Active Substance: DOXORUBICIN HYDROCHLORIDE
     Indication: Hodgkin^s disease
     Dosage: 15 MG, CYCLICAL, DAY 1 + 8 OF EACH 21-DAY CYCLE
     Route: 042
     Dates: start: 20240705, end: 20240912

REACTIONS (2)
  - Pulmonary embolism [Recovered/Resolved]
  - Anaemia [Recovered/Resolved]

NARRATIVE: CASE EVENT DATE: 20240914
